FAERS Safety Report 4761199-0 (Version None)
Quarter: 2005Q3

REPORT INFORMATION
  Report Type: 
  Country: None (occurrence: None)
  Receive Date: 20050901
  Receipt Date: 20050524
  Transmission Date: 20060218
  Serious: Yes (Life-Threatening, Hospitalization)
  Sender: FDA-Public Use
  Company Number: 2005FR-00232

PATIENT
  Age: 59 Year
  Sex: Male

DRUGS (8)
  1. LISINOPRIL [Suspect]
     Indication: CARDIAC FAILURE
     Dosage: 20 MG, ORAL
     Route: 048
  2. LISINOPRIL [Suspect]
     Indication: HYPERTENSION
     Dosage: 20 MG, ORAL
     Route: 048
  3. FUROSEMIDE [Suspect]
     Indication: CARDIAC FAILURE
     Dosage: 40 MG, ORAL
     Route: 048
  4. FUROSEMIDE [Suspect]
     Indication: HYPERTENSION
     Dosage: 40 MG, ORAL
     Route: 048
  5. ALLOPURINOL [Concomitant]
  6. COLCHICINE [Concomitant]
  7. ATENOLOL [Concomitant]
  8. OXAZEPAM [Concomitant]

REACTIONS (4)
  - ANURIA [None]
  - DIARRHOEA [None]
  - LETHARGY [None]
  - RENAL IMPAIRMENT [None]
